FAERS Safety Report 17006118 (Version 1)
Quarter: 2019Q4

REPORT INFORMATION
  Report Type: Spontaneous
  Country: US (occurrence: US)
  Receive Date: 20191107
  Receipt Date: 20191107
  Transmission Date: 20200122
  Serious: Yes (Hospitalization, Other)
  Sender: FDA-Public Use
  Company Number: US-ENDO PHARMACEUTICALS INC-2019-109399

PATIENT
  Age: 48 Year
  Sex: Male

DRUGS (9)
  1. VASOSTRICT [Suspect]
     Active Substance: VASOPRESSIN
     Indication: VASOSPASM
     Dosage: 3% VASOPRESSIN INFUSION (30 ML/HR)
     Route: 065
  2. VASOSTRICT [Suspect]
     Active Substance: VASOPRESSIN
     Dosage: 3% VASOPRESSIN INFUSION (30 ML/HR)
     Route: 065
  3. DEMECLOCYCLINE [Concomitant]
     Active Substance: DEMECLOCYCLINE
     Indication: INAPPROPRIATE ANTIDIURETIC HORMONE SECRETION
     Dosage: 150 ?G, UNKNOWN
     Route: 065
  4. BARBITURATES, PLAIN [Concomitant]
     Active Substance: UNSPECIFIED INGREDIENT
     Indication: INTRACRANIAL PRESSURE INCREASED
     Dosage: UNK UNKNOWN, UNKNOWN
     Route: 065
  5. VASOSTRICT [Suspect]
     Active Substance: VASOPRESSIN
     Dosage: UNK UNKNOWN, UNKNOWN
     Route: 065
  6. HYPERTONIC SALINE SOLUTION [Concomitant]
     Active Substance: SODIUM CHLORIDE
     Indication: INAPPROPRIATE ANTIDIURETIC HORMONE SECRETION
     Dosage: UNK UNKNOWN, UNKNOWN
     Route: 065
  7. VASOSTRICT [Suspect]
     Active Substance: VASOPRESSIN
     Dosage: UNK UNKNOWN, UNKNOWN
     Route: 065
  8. NOREPINEPHRINE. [Concomitant]
     Active Substance: NOREPINEPHRINE
     Indication: VASOSPASM
     Dosage: UNK UNKNOWN, UNKNOWN
     Route: 065
  9. PHENYLEPHRINE [Concomitant]
     Active Substance: PHENYLEPHRINE HYDROCHLORIDE
     Indication: VASOSPASM
     Dosage: UNK UNKNOWN, UNKNOWN
     Route: 065

REACTIONS (4)
  - Atrial fibrillation [Unknown]
  - Mental status changes postoperative [Unknown]
  - Diabetes insipidus [Recovered/Resolved]
  - Cardiac failure [Unknown]
